FAERS Safety Report 13568833 (Version 1)
Quarter: 2017Q2

REPORT INFORMATION
  Report Type: Report from Study
  Country: US (occurrence: US)
  Receive Date: 20170522
  Receipt Date: 20170522
  Transmission Date: 20170830
  Serious: Yes (Hospitalization)
  Sender: FDA-Public Use
  Company Number: US-B.I. PHARMACEUTICALS,INC./RIDGEFIELD-2015-BI-41618BI

PATIENT
  Age: 60 Year
  Sex: Male
  Weight: 91 kg

DRUGS (32)
  1. MELOXICAM. [Concomitant]
     Active Substance: MELOXICAM
     Indication: INFLAMMATION
  2. ASPIRIN. [Concomitant]
     Active Substance: ASPIRIN
     Indication: CHEST PAIN
  3. TRICOR [Concomitant]
     Active Substance: FENOFIBRATE
     Indication: BLOOD CHOLESTEROL INCREASED
  4. IMDUR [Concomitant]
     Active Substance: ISOSORBIDE MONONITRATE
     Indication: MYOCARDIAL INFARCTION
     Route: 048
     Dates: start: 20140410
  5. TRAZODONE [Concomitant]
     Active Substance: TRAZODONE HYDROCHLORIDE
     Indication: DEPRESSION
     Route: 048
     Dates: start: 20130401
  6. QVAR [Concomitant]
     Active Substance: BECLOMETHASONE DIPROPIONATE
     Indication: CHRONIC OBSTRUCTIVE PULMONARY DISEASE
     Route: 048
     Dates: start: 20140930
  7. ASPIRIN. [Concomitant]
     Active Substance: ASPIRIN
     Indication: MYOCARDIAL INFARCTION
     Route: 048
     Dates: start: 20130429
  8. PRAVASTATIN SODIUM. [Concomitant]
     Active Substance: PRAVASTATIN SODIUM
     Indication: BLOOD CHOLESTEROL INCREASED
  9. AMLODIPINE BESYLATE. [Concomitant]
     Active Substance: AMLODIPINE BESYLATE
     Indication: HYPERTENSION
     Route: 048
     Dates: start: 20140512
  10. TRICOR [Concomitant]
     Active Substance: FENOFIBRATE
     Indication: HYPERLIPIDAEMIA
     Route: 048
     Dates: start: 20141104
  11. METFORMIN [Concomitant]
     Active Substance: METFORMIN HYDROCHLORIDE
     Route: 048
     Dates: start: 20120412
  12. MELOXICAM. [Concomitant]
     Active Substance: MELOXICAM
     Indication: ANALGESIC INTERVENTION SUPPORTIVE THERAPY
  13. NITROSTAT [Concomitant]
     Active Substance: NITROGLYCERIN
     Indication: CHEST PAIN
     Dosage: DAILY DOSE 0.4MG PRN FOR CHEST PAIN
     Route: 048
     Dates: start: 20111222
  14. LISINOPRIL. [Concomitant]
     Active Substance: LISINOPRIL
     Indication: HYPERTENSION
     Route: 048
     Dates: start: 20140512
  15. IMIPRAMINE [Concomitant]
     Active Substance: IMIPRAMINE
     Indication: DEPRESSION
     Route: 048
     Dates: start: 20141224
  16. PROZAC [Concomitant]
     Active Substance: FLUOXETINE HYDROCHLORIDE
     Indication: ANXIETY
  17. IMDUR [Concomitant]
     Active Substance: ISOSORBIDE MONONITRATE
     Indication: MYOCARDIAL INFARCTION
  18. METOPROLOL SUCCINATE. [Concomitant]
     Active Substance: METOPROLOL SUCCINATE
     Indication: HYPERTENSION
     Route: 048
     Dates: start: 20111222
  19. METOPROLOL SUCCINATE. [Concomitant]
     Active Substance: METOPROLOL SUCCINATE
     Indication: ANGINA PECTORIS
     Route: 048
     Dates: start: 20150728
  20. DIVALPROEX SODIUM. [Concomitant]
     Active Substance: DIVALPROEX SODIUM
     Indication: MOOD ALTERED
     Route: 048
     Dates: start: 20141224
  21. IMDUR [Concomitant]
     Active Substance: ISOSORBIDE MONONITRATE
     Indication: ANGINA PECTORIS
  22. METOPROLOL SUCCINATE. [Concomitant]
     Active Substance: METOPROLOL SUCCINATE
     Indication: CARDIAC FAILURE
  23. PROZAC [Concomitant]
     Active Substance: FLUOXETINE HYDROCHLORIDE
     Indication: DEPRESSION
     Route: 048
     Dates: start: 20130429
  24. REMERON [Concomitant]
     Active Substance: MIRTAZAPINE
     Indication: DEPRESSION
     Route: 048
     Dates: start: 20130429
  25. TIOTROPIUM BROMIDE [Suspect]
     Active Substance: TIOTROPIUM BROMIDE
     Indication: CHRONIC OBSTRUCTIVE PULMONARY DISEASE
     Route: 048
     Dates: start: 20150529
  26. DIVALPROEX SODIUM. [Concomitant]
     Active Substance: DIVALPROEX SODIUM
     Indication: BIPOLAR DISORDER
  27. PRAVASTATIN SODIUM. [Concomitant]
     Active Substance: PRAVASTATIN SODIUM
     Indication: HYPERLIPIDAEMIA
     Route: 048
     Dates: start: 20140708
  28. PROAIR HFA [Concomitant]
     Active Substance: ALBUTEROL SULFATE
     Indication: CHRONIC OBSTRUCTIVE PULMONARY DISEASE
     Dosage: FORMULATION: INHALER, STRENGTH: 108 MCG/ACT, DAILY DOSE: 1-2 PUFFS EVERY 46 HOURS AS REQUIRED
     Route: 048
     Dates: start: 20150527
  29. MELOXICAM. [Concomitant]
     Active Substance: MELOXICAM
     Indication: ARTHRITIS
     Route: 048
     Dates: start: 20141017
  30. GLIMEPIRIDE. [Concomitant]
     Active Substance: GLIMEPIRIDE
     Indication: TYPE 2 DIABETES MELLITUS
     Route: 048
     Dates: start: 20141224
  31. TRAZODONE [Concomitant]
     Active Substance: TRAZODONE HYDROCHLORIDE
     Indication: SLEEP DISORDER
  32. METFORMIN [Concomitant]
     Active Substance: METFORMIN HYDROCHLORIDE
     Indication: TYPE 2 DIABETES MELLITUS
     Route: 048
     Dates: start: 20120914

REACTIONS (4)
  - Chronic obstructive pulmonary disease [Recovered/Resolved]
  - Chest pain [Recovered/Resolved]
  - Back pain [Not Recovered/Not Resolved]
  - Pneumonia [Recovered/Resolved]

NARRATIVE: CASE EVENT DATE: 20150721
